FAERS Safety Report 7196876-8 (Version None)
Quarter: 2010Q4

REPORT INFORMATION
  Report Type: 
  Country: None (occurrence: None)
  Receive Date: 20101223
  Receipt Date: 20101221
  Transmission Date: 20110411
  Serious: Yes (Other)
  Sender: FDA-Public Use
  Company Number: DE-AMGEN-DEUSP2010004066

PATIENT

DRUGS (1)
  1. NPLATE [Suspect]
     Indication: IDIOPATHIC THROMBOCYTOPENIC PURPURA
     Dosage: 10 A?G, UNK
     Dates: start: 20100901

REACTIONS (8)
  - CHROMOSOMAL DELETION [None]
  - CHRONIC MYELOMONOCYTIC LEUKAEMIA [None]
  - FACTOR XIII DEFICIENCY [None]
  - LEUKOCYTOSIS [None]
  - MYELOPROLIFERATIVE DISORDER [None]
  - SPLENIC INFARCTION [None]
  - SPLENOMEGALY [None]
  - UNEVALUABLE EVENT [None]
